FAERS Safety Report 8523414-7 (Version None)
Quarter: 2012Q3

REPORT INFORMATION
  Report Type: 
  Country: None (occurrence: None)
  Receive Date: 20120720
  Receipt Date: 20120709
  Transmission Date: 20120928
  Serious: Yes (Other)
  Sender: FDA-Public Use
  Company Number: ES-MSD-1207ESP003023

PATIENT

DRUGS (14)
  1. PEG-INTRON [Suspect]
     Indication: HEPATITIS C
     Dosage: 120 MICROGRAM, QW
     Dates: start: 20120201, end: 20120306
  2. INTRON A [Suspect]
     Dosage: UNK
     Dates: start: 19990101
  3. MOXONIDINE [Concomitant]
     Indication: HYPERTENSION
  4. REBETOL [Suspect]
     Indication: HEPATITIS C
     Dosage: 1200 MG, QD
     Dates: start: 19940301
  5. REBETOL [Suspect]
     Dosage: UNK
     Dates: start: 19990101
  6. TELAPREVIR [Suspect]
     Indication: HEPATITIS C
     Dosage: 750 MG, Q8H
     Dates: start: 20120201, end: 20120310
  7. REBETOL [Suspect]
     Dosage: 1200 MG, QD
     Dates: start: 20120201, end: 20120313
  8. INTRON A [Suspect]
     Dosage: 6 MIU, TIW, LYMPHOBLASTOID INJECTION
     Dates: start: 19930101
  9. INTRON A [Suspect]
     Dosage: UNK
     Dates: start: 19960201, end: 19960501
  10. VERAPAMIL [Concomitant]
     Indication: HYPERTENSION
  11. TELMISARTAN [Concomitant]
     Indication: HYPERTENSION
  12. REBETOL [Suspect]
     Dosage: UNK
     Dates: start: 19960201, end: 19960501
  13. INTRON A [Suspect]
     Indication: HEPATITIS C
     Dosage: 3 MU, TIW
     Dates: start: 19920901, end: 19930301
  14. TRANDOLAPRIL [Concomitant]
     Indication: HYPERTENSION

REACTIONS (3)
  - DRUG INEFFECTIVE [None]
  - DRUG RASH WITH EOSINOPHILIA AND SYSTEMIC SYMPTOMS [None]
  - PYREXIA [None]
